FAERS Safety Report 7534977-2 (Version None)
Quarter: 2011Q2

REPORT INFORMATION
  Report Type: 
  Country: None (occurrence: None)
  Receive Date: 20110609
  Receipt Date: 20090126
  Transmission Date: 20111010
  Serious: Yes (Hospitalization)
  Sender: FDA-Public Use
  Company Number: PHHY2009HU02626

PATIENT
  Age: 80 Year
  Sex: Male

DRUGS (1)
  1. AMLODIPINE BESYLATE AND VALSARTAN [Suspect]

REACTIONS (2)
  - CATHETERISATION CARDIAC [None]
  - ANGINA PECTORIS [None]
